FAERS Safety Report 24056260 (Version 1)
Quarter: 2024Q3

REPORT INFORMATION
  Report Type: Spontaneous
  Country: US (occurrence: US)
  Receive Date: 20240705
  Receipt Date: 20240705
  Transmission Date: 20241017
  Serious: Yes (Hospitalization)
  Sender: BRISTOL MYERS SQUIBB
  Company Number: US-BRISTOL-MYERS SQUIBB COMPANY-2024-106609

PATIENT
  Age: 78 Year
  Sex: Male

DRUGS (1)
  1. THALOMID [Suspect]
     Active Substance: THALIDOMIDE
     Indication: Idiopathic pulmonary fibrosis
     Dosage: HS
     Route: 048

REACTIONS (5)
  - Arthralgia [Unknown]
  - Gait inability [Unknown]
  - Carbon dioxide abnormal [Unknown]
  - Dysstasia [Unknown]
  - Off label use [Unknown]
